FAERS Safety Report 6529269-4 (Version None)
Quarter: 2010Q1

REPORT INFORMATION
  Report Type: 
  Country: None (occurrence: None)
  Receive Date: 20100107
  Receipt Date: 20091207
  Transmission Date: 20100710
  Serious: No
  Sender: FDA-Public Use
  Company Number: US-BAYER-200825044NA

PATIENT
  Age: 69 Year
  Sex: Female
  Weight: 57 kg

DRUGS (4)
  1. BETAPACE [Suspect]
     Indication: ATRIAL FIBRILLATION
     Dosage: TOTAL DAILY DOSE: 160 MG  UNIT DOSE: 80 MG
     Route: 048
     Dates: start: 20071201
  2. BETAPACE [Suspect]
     Route: 048
     Dates: start: 20060601, end: 20061201
  3. TENORMIN [Suspect]
     Indication: HYPERTENSION
     Route: 048
  4. COUMADIN [Concomitant]

REACTIONS (1)
  - HEART RATE IRREGULAR [None]
